FAERS Safety Report 5373229-6 (Version None)
Quarter: 2007Q2

REPORT INFORMATION
  Report Type: 
  Country: None (occurrence: None)
  Receive Date: 20070628
  Receipt Date: 20070619
  Transmission Date: 20071010
  Serious: Yes (Other)
  Sender: FDA-Public Use
  Company Number: PHBS2007GT10245

PATIENT
  Age: 27 Year
  Sex: Male

DRUGS (5)
  1. SIRDALUD [Suspect]
     Indication: MUSCLE SPASMS
     Dosage: 4 MG, Q8H
     Route: 048
     Dates: start: 20070501
  2. CATAFLAM [Suspect]
     Indication: PAIN
     Dosage: 50 MG/DAY PRN
     Route: 048
  3. NIMOTOP [Concomitant]
     Dosage: 60 MG, Q8H
     Route: 048
  4. RANITIDINE HCL [Concomitant]
     Dosage: 300 MG/DAY
     Route: 048
  5. DORIXINA RELAX [Concomitant]
     Dosage: 1 DF/DAY
     Route: 048

REACTIONS (2)
  - AUTONOMIC NERVOUS SYSTEM IMBALANCE [None]
  - HYPERTENSION [None]
